FAERS Safety Report 11087447 (Version 1)
Quarter: 2015Q2

REPORT INFORMATION
  Report Type: Spontaneous
  Country: US (occurrence: US)
  Receive Date: 20150504
  Receipt Date: 20150504
  Transmission Date: 20150821
  Serious: No
  Sender: FDA-Public Use
  Company Number: US-BAYER-2015-180117

PATIENT
  Age: 80 Year
  Sex: Female
  Weight: 70 kg

DRUGS (1)
  1. OXYTROL FOR WOMEN [Suspect]
     Active Substance: OXYBUTYNIN
     Indication: INCONTINENCE
     Dosage: UNK, EVERY 5 DAYS
     Dates: start: 20150119, end: 20150212

REACTIONS (3)
  - Application site rash [Recovering/Resolving]
  - Hypersensitivity [None]
  - Application site rash [None]

NARRATIVE: CASE EVENT DATE: 20150204
